FAERS Safety Report 8537078-X (Version None)
Quarter: 2012Q3

REPORT INFORMATION
  Report Type: 
  Country: None (occurrence: None)
  Receive Date: 20120725
  Receipt Date: 20120716
  Transmission Date: 20120928
  Serious: Yes (Other)
  Sender: FDA-Public Use
  Company Number: US-ASTRAZENECA-2012SE49992

PATIENT
  Age: 87 Year
  Sex: Male

DRUGS (18)
  1. MOTRIN [Concomitant]
     Route: 048
     Dates: start: 20111110
  2. FISH OIL [Concomitant]
     Dates: start: 20101228
  3. MELATONIN [Concomitant]
     Route: 048
     Dates: start: 20110510
  4. VITAMIN D [Concomitant]
     Dates: start: 20101228
  5. OMEPRAZOLE [Suspect]
     Route: 048
     Dates: start: 20111110
  6. LANTUS [Concomitant]
     Dosage: 20 UNITS AT BEDTIME 90 DAY SUPPLY
     Route: 058
     Dates: start: 20111110
  7. VITAMIN B-12 [Concomitant]
     Dates: start: 20101228
  8. ASPIRIN [Concomitant]
     Route: 048
     Dates: start: 20111110
  9. GLUCOSE STRIPS [Concomitant]
     Dosage: CHECKS BLOOD SUGAR 1-2 TIMES PER DAY 1 MONTH SUPPLY 90 DAY SUPPLY
     Dates: start: 20111110
  10. INSULIN SYRINGES [Concomitant]
     Dosage: 31 GUAGE 0.3 CC SHORT SYRINGE ULTRAFINE
     Dates: start: 20111110
  11. LASIX [Concomitant]
     Route: 048
     Dates: start: 20111110
  12. LUMIGAN [Concomitant]
     Dosage: 0.03 % ONE DROP
     Route: 047
  13. NAMENDA [Concomitant]
     Route: 048
     Dates: start: 20111110
  14. COMBIGAN [Concomitant]
     Dosage: 0.2- 0.5% 1 DROP EVERY 12 HOURS
     Route: 047
  15. NORVASC [Concomitant]
     Route: 048
     Dates: start: 20111110
  16. SIMVASTATIN [Concomitant]
     Route: 048
     Dates: start: 20111110
  17. TRAZODONE HYDROCHLORIDE [Concomitant]
     Dosage: 1/2-1 PER ORAL QPM WITH DINNER OR TOWARD BEDTIME
     Route: 048
     Dates: start: 20111110
  18. ARICEPT [Concomitant]
     Route: 048
     Dates: start: 20111110

REACTIONS (21)
  - GASTROOESOPHAGEAL REFLUX DISEASE [None]
  - ULCER [None]
  - FATIGUE [None]
  - DEAFNESS [None]
  - HYPERLIPIDAEMIA [None]
  - DEMENTIA ALZHEIMER'S TYPE [None]
  - ABNORMAL BEHAVIOUR [None]
  - WHEEZING [None]
  - COLON CANCER [None]
  - TYPE 2 DIABETES MELLITUS [None]
  - MEMORY IMPAIRMENT [None]
  - DYSPNOEA [None]
  - ARTHRALGIA [None]
  - INSOMNIA [None]
  - CORONARY ARTERY DISEASE [None]
  - ANAEMIA [None]
  - AGGRESSION [None]
  - PROSTATE CANCER [None]
  - ESSENTIAL HYPERTENSION [None]
  - ACTIVITIES OF DAILY LIVING IMPAIRED [None]
  - IMPAIRED SELF-CARE [None]
